FAERS Safety Report 5645320-8 (Version None)
Quarter: 2008Q1

REPORT INFORMATION
  Report Type: 
  Country: None (occurrence: None)
  Receive Date: 20080229
  Receipt Date: 20080226
  Transmission Date: 20080703
  Serious: Yes (Hospitalization)
  Sender: FDA-Public Use
  Company Number: B0490430B

PATIENT
  Age: 55 Year
  Sex: Female
  Weight: 78.7 kg

DRUGS (2)
  1. LAPATINIB [Suspect]
     Dosage: 1250MG PER DAY
     Route: 048
     Dates: start: 20070828, end: 20080129
  2. CAPECITABINE [Suspect]
     Route: 048
     Dates: start: 20070828, end: 20080129

REACTIONS (3)
  - DYSPNOEA [None]
  - PERICARDIAL EFFUSION MALIGNANT [None]
  - PULMONARY EMBOLISM [None]
